FAERS Safety Report 11240675 (Version 1)
Quarter: 2015Q3

REPORT INFORMATION
  Report Type: Spontaneous
  Country: FR (occurrence: FR)
  Receive Date: 20150706
  Receipt Date: 20150706
  Transmission Date: 20151125
  Serious: Yes (Hospitalization)
  Sender: FDA-Public Use
  Company Number: FR-TEVA-573828ISR

PATIENT
  Age: 58 Year
  Sex: Male

DRUGS (5)
  1. CISPLATINE TEVA [Suspect]
     Active Substance: CISPLATIN
     Dosage: 65 MILLIGRAM DAILY; COURSE OF ALIMTA- CISPLATIN
     Route: 042
     Dates: start: 20150521, end: 20150521
  2. CISPLATINE TEVA [Suspect]
     Active Substance: CISPLATIN
     Dosage: COURSE OF ALIMTA-CISPLATIN
     Route: 042
     Dates: start: 20150611, end: 20150611
  3. ALIMTA [Suspect]
     Active Substance: PEMETREXED DISODIUM
     Dosage: 850 MILLIGRAM DAILY; COURSE OF ALIMTA- CISPLATIN
     Route: 042
     Dates: start: 20150521, end: 20150521
  4. ALIMTA [Suspect]
     Active Substance: PEMETREXED DISODIUM
     Dosage: COURSE OF ALIMTA-CISPLATIN
     Route: 042
     Dates: start: 20150611, end: 20150611
  5. CISPLATINE TEVA [Suspect]
     Active Substance: CISPLATIN
     Route: 042
     Dates: start: 20150522, end: 20150522

REACTIONS (3)
  - Feeling hot [Recovered/Resolved]
  - Erythema [Recovered/Resolved]
  - Urticaria [Recovered/Resolved]

NARRATIVE: CASE EVENT DATE: 20150521
